FAERS Safety Report 10399690 (Version 1)
Quarter: 2014Q3

REPORT INFORMATION
  Report Type: Spontaneous
  Country: FR (occurrence: FR)
  Receive Date: 20140821
  Receipt Date: 20140821
  Transmission Date: 20150326
  Serious: Yes (Hospitalization)
  Sender: FDA-Public Use
  Company Number: FR-BRISTOL-MYERS SQUIBB COMPANY-21300181

PATIENT
  Age: 61 Year
  Sex: Male

DRUGS (17)
  1. NICOPATCH [Concomitant]
     Active Substance: NICOTINE
  2. CIFLOX [Concomitant]
     Active Substance: CIPROFLOXACIN
  3. SPECIAFOLDINE [Concomitant]
     Active Substance: FOLIC ACID
  4. BISOPROLOL [Concomitant]
     Active Substance: BISOPROLOL
  5. CORDARONE [Concomitant]
     Active Substance: AMIODARONE HYDROCHLORIDE
  6. FUROSEMIDE. [Concomitant]
     Active Substance: FUROSEMIDE
  7. KARDEGIC [Concomitant]
     Active Substance: ASPIRIN LYSINE
  8. PREVISCAN [Concomitant]
     Active Substance: FLUINDIONE
  9. KAYEXALATE [Concomitant]
     Active Substance: SODIUM POLYSTYRENE SULFONATE
  10. CETIRIZINE [Concomitant]
     Active Substance: CETIRIZINE HYDROCHLORIDE
  11. DIFFU-K [Concomitant]
     Active Substance: POTASSIUM CHLORIDE
  12. PERFALGAN [Concomitant]
     Active Substance: ACETAMINOPHEN
  13. CEFOTAXIME [Concomitant]
     Active Substance: CEFOTAXIME\CEFOTAXIME SODIUM
  14. COUMADINE [Suspect]
     Active Substance: WARFARIN SODIUM
     Dosage: SCORED TABLET
     Dates: start: 20140531, end: 20140602
  15. TAZOCILLINE [Suspect]
     Active Substance: PIPERACILLIN SODIUM\TAZOBACTAM SODIUM
     Route: 042
     Dates: start: 20140517, end: 20140524
  16. INIPOMP [Concomitant]
     Active Substance: PANTOPRAZOLE SODIUM
  17. HEPARIN SODIUM. [Concomitant]
     Active Substance: HEPARIN SODIUM

REACTIONS (2)
  - Toxic skin eruption [Recovering/Resolving]
  - Linear IgA disease [Recovering/Resolving]

NARRATIVE: CASE EVENT DATE: 20140606
